FAERS Safety Report 9770783 (Version 1)
Quarter: 2013Q4

REPORT INFORMATION
  Report Type: Spontaneous
  Country: GB (occurrence: GB)
  Receive Date: 20131218
  Receipt Date: 20131218
  Transmission Date: 20140711
  Serious: Yes (Hospitalization, Other)
  Sender: FDA-Public Use
  Company Number: GB-TEVA-450018ISR

PATIENT
  Age: 59 Year
  Sex: Female
  Weight: 60 kg

DRUGS (8)
  1. BISOPROLOL [Suspect]
     Indication: ATRIAL FIBRILLATION
     Dosage: 1.25 MILLIGRAM DAILY;
     Route: 048
  2. TRIMETHOPRIM [Suspect]
     Indication: URINARY TRACT INFECTION
     Dosage: 400 MILLIGRAM DAILY;
     Route: 048
     Dates: start: 20130830
  3. PALIPERIDONE [Suspect]
     Indication: SCHIZOPHRENIA
     Dosage: 5.3571 MILLIGRAM DAILY;
     Route: 030
  4. CARBAMAZEPINE [Concomitant]
     Indication: AFFECTIVE DISORDER
     Dosage: 800 MILLIGRAM DAILY; AT NIGHT.
     Route: 048
  5. VALPROIC ACID [Concomitant]
     Indication: AFFECTIVE DISORDER
     Dosage: 1500 MILLIGRAM DAILY; AT NIGHT.
     Route: 048
  6. LORAZEPAM [Concomitant]
     Dosage: 6 MILLIGRAM DAILY;
     Route: 048
  7. RISPERIDONE [Concomitant]
     Dosage: 6 MILLIGRAM DAILY; 2 MG IN THE MORNING, 4 MG AT NIGHT.
     Route: 048
  8. CARBIMAZOLE [Concomitant]
     Dosage: 20 MILLIGRAM DAILY; IN THE MORNING.
     Route: 048

REACTIONS (2)
  - Bradycardia [Recovered/Resolved]
  - Toxicity to various agents [Recovered/Resolved]
